FAERS Safety Report 8307448-3 (Version None)
Quarter: 2012Q2

REPORT INFORMATION
  Report Type: 
  Country: None (occurrence: None)
  Receive Date: 20120424
  Receipt Date: 20120418
  Transmission Date: 20120825
  Serious: Yes (Hospitalization)
  Sender: FDA-Public Use
  Company Number: US-AMGEN-USASP2012024247

PATIENT
  Age: 63 Year
  Sex: Female

DRUGS (6)
  1. NIFEDIPINE [Concomitant]
     Dosage: UNK MG, UNK
  2. CALCIUM PLUS D3 [Concomitant]
     Dosage: UNK
  3. FOSAMAX [Concomitant]
     Dosage: UNK
  4. METHOTREXATE [Concomitant]
     Dosage: UNK
  5. ENBREL [Suspect]
     Indication: RHEUMATOID ARTHRITIS
     Dosage: 50 MG, QWK
     Dates: start: 20120301
  6. FOLIC ACID [Concomitant]
     Dosage: UNK

REACTIONS (9)
  - OSTEOARTHRITIS [None]
  - COUGH [None]
  - FEELING ABNORMAL [None]
  - VIRAL INFECTION [None]
  - ARTHRITIS [None]
  - PAIN IN EXTREMITY [None]
  - INFECTION [None]
  - JOINT RANGE OF MOTION DECREASED [None]
  - NASOPHARYNGITIS [None]
